FAERS Safety Report 9379113 (Version 1)
Quarter: 2013Q2

REPORT INFORMATION
  Report Type: Spontaneous
  Country: US (occurrence: None)
  Receive Date: 20130626
  Receipt Date: 20130626
  Transmission Date: 20140414
  Serious: Yes (Other)
  Sender: FDA-Public Use
  Company Number: 001556224A

PATIENT
  Age: 50 Year
  Sex: Female

DRUGS (6)
  1. MEANINGFUL BEAUTY ANTIOXIDANT DAY CREME SPF 20 [Suspect]
     Dosage: ONCE DAILY DERMAL
     Dates: start: 20130401, end: 20130529
  2. MEANINGFUL BEAUTY SKIN BRIGHTENING DECOLLETE NECK TREATMENT SPF.15 [Suspect]
     Dosage: ONCE DAILY DERMAL
     Dates: start: 20130401, end: 20130529
  3. MELOXICAM [Concomitant]
  4. LOSARTAN HCTZ [Concomitant]
  5. SIMVASTATIN [Concomitant]
  6. NITROGLYCERIN [Concomitant]

REACTIONS (6)
  - Thermal burn [None]
  - Swelling face [None]
  - Eye swelling [None]
  - Lip swelling [None]
  - Chest pain [None]
  - Dyspnoea [None]
